FAERS Safety Report 16932480 (Version 2)
Quarter: 2019Q4

REPORT INFORMATION
  Report Type: Spontaneous
  Country: CO (occurrence: CO)
  Receive Date: 20191017
  Receipt Date: 20191101
  Transmission Date: 20200122
  Serious: Yes (Hospitalization)
  Sender: FDA-Public Use
  Company Number: CO-BAXTER-2019BAX020145

PATIENT
  Age: 76 Year
  Sex: Female
  Weight: 60 kg

DRUGS (4)
  1. VANCOCIN CP INYECTABLE [Suspect]
     Active Substance: VANCOMYCIN HYDROCHLORIDE
     Indication: PRODUCT USED FOR UNKNOWN INDICATION
     Dosage: VANCOMYCIN 500 MG STERILE LYOPHILIZED POWDER TO RECONSTITUTE AN INJECTABLE IV SOLUTION/ 1 G EVERY 24
     Route: 042
     Dates: start: 20190915, end: 20190923
  2. CEFTRIAXONE. [Suspect]
     Active Substance: CEFTRIAXONE
     Indication: PRODUCT USED FOR UNKNOWN INDICATION
     Route: 065
  3. METRONIDAZOLE. [Suspect]
     Active Substance: METRONIDAZOLE
     Indication: PRODUCT USED FOR UNKNOWN INDICATION
     Route: 065
  4. METRONIDAZOLE. [Suspect]
     Active Substance: METRONIDAZOLE
     Dosage: DOSE RE-INTRODUCED
     Route: 065

REACTIONS (7)
  - Encephalopathy [Unknown]
  - Electrolyte imbalance [Unknown]
  - Hypokalaemia [Unknown]
  - Hepatic failure [Unknown]
  - Thermal burn [Unknown]
  - Stevens-Johnson syndrome [Unknown]
  - Keratitis [Unknown]

NARRATIVE: CASE EVENT DATE: 201909
